FAERS Safety Report 21585704 (Version 2)
Quarter: 2022Q4

REPORT INFORMATION
  Report Type: Report from Study
  Country: US (occurrence: US)
  Receive Date: 20221111
  Receipt Date: 20221221
  Transmission Date: 20230113
  Serious: Yes (Hospitalization)
  Sender: FDA-Public Use
  Company Number: US-PFIZER INC-PV202200096084

PATIENT
  Age: 53 Year
  Sex: Female
  Weight: 116.69 kg

DRUGS (4)
  1. PF-07284892 [Suspect]
     Active Substance: PF-07284892
     Indication: Neoplasm malignant
     Dosage: 20 MG, ONCE, TABLET
     Route: 048
     Dates: start: 20221018, end: 20221018
  2. PF-07284892 [Suspect]
     Active Substance: PF-07284892
     Dosage: 40 MG, 2X/WEEK, CAPSULE
     Route: 048
     Dates: start: 20221025, end: 20221029
  3. BINIMETINIB [Suspect]
     Active Substance: BINIMETINIB
     Indication: Neoplasm malignant
     Dosage: 45 MG, 2X/DAY
     Route: 048
     Dates: start: 20221025, end: 20221029
  4. DOXYLAMINE SUCCINATE [Concomitant]
     Active Substance: DOXYLAMINE SUCCINATE
     Indication: Sleep disorder
     Dosage: UNK
     Dates: start: 20221018

REACTIONS (1)
  - Peripheral sensory neuropathy [Recovered/Resolved]

NARRATIVE: CASE EVENT DATE: 20221101
